FAERS Safety Report 4375342-9 (Version None)
Quarter: 2004Q2

REPORT INFORMATION
  Report Type: 
  Country: None (occurrence: None)
  Receive Date: 20040528
  Receipt Date: 20040513
  Transmission Date: 20050107
  Serious: Yes (Other)
  Sender: FDA-Public Use
  Company Number: 200410348BCA

PATIENT
  Age: 74 Year
  Sex: Female

DRUGS (3)
  1. GAMUNEX [Suspect]
     Indication: HYPOGAMMAGLOBULINAEMIA
     Dosage: 35 G, INTRAVENOUS
     Route: 042
     Dates: start: 20040510
  2. GAMUNEX [Suspect]
  3. GAMUNEX [Suspect]

REACTIONS (4)
  - BLOOD PRESSURE DECREASED [None]
  - BODY TEMPERATURE INCREASED [None]
  - HEART RATE INCREASED [None]
  - RESPIRATORY DISORDER [None]
